FAERS Safety Report 5324895-2 (Version None)
Quarter: 2007Q2

REPORT INFORMATION
  Report Type: 
  Country: None (occurrence: None)
  Receive Date: 20070509
  Receipt Date: 20070423
  Transmission Date: 20071010
  Serious: Yes (Death)
  Sender: FDA-Public Use
  Company Number: 4511

PATIENT
  Age: 67 Year
  Sex: Male

DRUGS (2)
  1. AMNESTEEM [Suspect]
     Indication: ACNE CYSTIC
     Dosage: 40 MG, QD, PO
     Route: 048
     Dates: start: 20060605
  2. AMNESTEEM [Suspect]
     Indication: ACNE CYSTIC
     Dosage: 40 MG, QD, PO
     Route: 048
     Dates: start: 20060101, end: 20070201

REACTIONS (1)
  - MYOCARDIAL INFARCTION [None]
